FAERS Safety Report 16593905 (Version 1)
Quarter: 2019Q3

REPORT INFORMATION
  Report Type: Other
  Country: US (occurrence: US)
  Receive Date: 20190718
  Receipt Date: 20190718
  Transmission Date: 20191004
  Serious: No
  Sender: FDA-Public Use
  Company Number: US-SWEDISH ORPHAN BIOVITRUM-2018US1544

PATIENT
  Sex: Male

DRUGS (4)
  1. HYDROCORTISONE TOPICAL OINTMENT [Concomitant]
  2. TRIAMCINOLONE TOPICAL OINTMENT [Concomitant]
  3. KINERET [Suspect]
     Active Substance: ANAKINRA
     Indication: JUVENILE IDIOPATHIC ARTHRITIS
     Route: 058
     Dates: end: 20181123
  4. ADVIL CHILDREN^S [Concomitant]

REACTIONS (1)
  - Injection site swelling [Unknown]
